FAERS Safety Report 5616135-1 (Version None)
Quarter: 2008Q1

REPORT INFORMATION
  Report Type: 
  Country: None (occurrence: None)
  Receive Date: 20080206
  Receipt Date: 20080125
  Transmission Date: 20080703
  Serious: Yes (Hospitalization, Other)
  Sender: FDA-Public Use
  Company Number: US-PFIZER INC-2008008061

PATIENT
  Sex: Male
  Weight: 77.272 kg

DRUGS (3)
  1. DILANTIN [Suspect]
     Indication: CONVULSION
     Route: 048
  2. OXYCODONE HCL [Suspect]
     Indication: BACK INJURY
     Dosage: TEXT:PRN
  3. PHENOBARBITAL TAB [Concomitant]
     Indication: CONVULSION

REACTIONS (3)
  - BACK INJURY [None]
  - CONVULSION [None]
  - LOSS OF CONSCIOUSNESS [None]
